FAERS Safety Report 15871218 (Version 2)
Quarter: 2019Q1

REPORT INFORMATION
  Report Type: Spontaneous
  Country: US (occurrence: US)
  Receive Date: 20190126
  Receipt Date: 20190129
  Transmission Date: 20190417
  Serious: No
  Sender: FDA-Public Use
  Company Number: US-TEVA-2019-US-994552

PATIENT
  Sex: Female

DRUGS (1)
  1. VANDAZOLE [Suspect]
     Active Substance: METRONIDAZOLE
     Indication: BACTERIAL VAGINOSIS
     Route: 067
     Dates: start: 201812

REACTIONS (6)
  - Product use issue [Unknown]
  - Product outer packaging issue [None]
  - Drug ineffective [None]
  - Disease recurrence [None]
  - Product dose omission [Unknown]
  - Drug effect variable [Unknown]
